FAERS Safety Report 15613939 (Version 1)
Quarter: 2018Q4

REPORT INFORMATION
  Report Type: Spontaneous
  Country: US (occurrence: US)
  Receive Date: 20181113
  Receipt Date: 20181113
  Transmission Date: 20190205
  Serious: No
  Sender: FDA-Public Use
  Company Number: US-009507513-1810USA013823

PATIENT
  Age: 56 Year
  Sex: Male

DRUGS (4)
  1. TAMSULOSIN HYDROCHLORIDE. [Concomitant]
     Active Substance: TAMSULOSIN HYDROCHLORIDE
  2. XARELTO [Concomitant]
     Active Substance: RIVAROXABAN
  3. KEYTRUDA [Suspect]
     Active Substance: PEMBROLIZUMAB
     Indication: COLORECTAL CANCER
     Dosage: 200 MILLIGRAM, EVERY THREE WEEKS (SIXTEEN CYCLES)
     Route: 042
  4. COUMADIN [Concomitant]
     Active Substance: WARFARIN SODIUM

REACTIONS (5)
  - Hypoaesthesia [Unknown]
  - Pain in jaw [Unknown]
  - Product use in unapproved indication [Unknown]
  - Ear pain [Unknown]
  - Auricular haematoma [Unknown]

NARRATIVE: CASE EVENT DATE: 2018
